FAERS Safety Report 5758852-9 (Version None)
Quarter: 2008Q2

REPORT INFORMATION
  Report Type: 
  Country: None (occurrence: None)
  Receive Date: 20080603
  Receipt Date: 20080603
  Transmission Date: 20081010
  Serious: Yes (Hospitalization)
  Sender: FDA-Public Use
  Company Number: None

PATIENT
  Age: 82 Year
  Sex: Male

DRUGS (2)
  1. AZITHROMYCIN [Suspect]
     Indication: RESPIRATORY TRACT INFECTION
     Dosage: 250 MG EVERY DAY PO
     Route: 048
     Dates: start: 20071119, end: 20071122
  2. CEPHALEXIN [Suspect]
     Indication: IMPLANTABLE DEFIBRILLATOR INSERTION
     Dosage: 500 MG QID PO
     Route: 048
     Dates: start: 20071031, end: 20071104

REACTIONS (4)
  - CARDIAC FAILURE CONGESTIVE [None]
  - CLOSTRIDIUM DIFFICILE COLITIS [None]
  - DEEP VEIN THROMBOSIS [None]
  - UNEVALUABLE EVENT [None]
